FAERS Safety Report 22761569 (Version 5)
Quarter: 2023Q4

REPORT INFORMATION
  Report Type: Spontaneous
  Country: US (occurrence: US)
  Receive Date: 20230728
  Receipt Date: 20231003
  Transmission Date: 20240110
  Serious: No
  Sender: FDA-Public Use
  Company Number: US-PFIZER INC-PV202300035375

PATIENT
  Age: 79 Year
  Sex: Female
  Weight: 32.834 kg

DRUGS (5)
  1. IBRANCE [Suspect]
     Active Substance: PALBOCICLIB
     Indication: Breast cancer metastatic
     Dosage: 125 MG, CYCLIC (125MG DAILY ON DAYS 1-21 OF A 28 DAY CYCLE)
     Route: 048
  2. IBRANCE [Suspect]
     Active Substance: PALBOCICLIB
     Dosage: 100 MG
  3. IBRANCE [Suspect]
     Active Substance: PALBOCICLIB
     Dosage: 75 MG, CYCLIC (DAILY FOR DAYS 1-14 THEN OFF DAYS 15-28)
     Route: 048
  4. IBRANCE [Suspect]
     Active Substance: PALBOCICLIB
     Dosage: 75 MG, 1X/DAY (FOR 3 WEEKS AND OFF 1 WEEK
     Dates: start: 20230910
  5. ANASTROZOLE [Concomitant]
     Active Substance: ANASTROZOLE
     Dosage: 1 MG
     Dates: start: 20221101

REACTIONS (6)
  - Speech disorder [Recovered/Resolved]
  - Off label use [Recovered/Resolved]
  - Product use issue [Unknown]
  - Asthenia [Unknown]
  - White blood cell count abnormal [Unknown]
  - Underweight [Unknown]

NARRATIVE: CASE EVENT DATE: 20230720
